FAERS Safety Report 8350849-8 (Version None)
Quarter: 2012Q2

REPORT INFORMATION
  Report Type: 
  Country: None (occurrence: None)
  Receive Date: 20120510
  Receipt Date: 20120501
  Transmission Date: 20120825
  Serious: Yes (Other)
  Sender: FDA-Public Use
  Company Number: US-ROCHE-1052727

PATIENT
  Sex: Male
  Weight: 65.376 kg

DRUGS (2)
  1. ZELBORAF [Suspect]
     Indication: MALIGNANT MELANOMA STAGE IV
     Route: 048
     Dates: start: 20120204
  2. AUGMENTIN [Concomitant]
     Indication: URINARY TRACT INFECTION

REACTIONS (8)
  - EYE INFECTION [None]
  - ERYTHEMA [None]
  - ALOPECIA [None]
  - NEOPLASM [None]
  - SUNBURN [None]
  - MASS [None]
  - DYSGEUSIA [None]
  - RASH [None]
